FAERS Safety Report 13098435 (Version 1)
Quarter: 2017Q1

REPORT INFORMATION
  Report Type: Spontaneous
  Country: IT (occurrence: IT)
  Receive Date: 20170109
  Receipt Date: 20170109
  Transmission Date: 20170428
  Serious: Yes (Other)
  Sender: FDA-Public Use
  Company Number: IT-TEVA-726305ACC

PATIENT
  Age: 12 Year
  Sex: Female

DRUGS (1)
  1. RISPERIDONE. [Suspect]
     Active Substance: RISPERIDONE
     Dosage: 1.5 MILLIGRAM DAILY;

REACTIONS (6)
  - Brain oedema [Unknown]
  - Asthenia [Unknown]
  - Seizure [Unknown]
  - Headache [Unknown]
  - Visual impairment [Unknown]
  - Hypertension [Unknown]
